FAERS Safety Report 16934320 (Version 2)
Quarter: 2020Q4

REPORT INFORMATION
  Report Type: Spontaneous
  Country: US (occurrence: US)
  Receive Date: 20191018
  Receipt Date: 20201015
  Transmission Date: 20210113
  Serious: No
  Sender: FDA-Public Use
  Company Number: US-GLENMARK PHARMACEUTICALS-2019GMK042871

PATIENT

DRUGS (1)
  1. BETAMETHASONE DIPROPIONATE. [Suspect]
     Active Substance: BETAMETHASONE DIPROPIONATE
     Indication: PSORIASIS
     Dosage: UNK, PRN
     Route: 061
     Dates: start: 20181226

REACTIONS (7)
  - Product dispensing error [Unknown]
  - Product packaging issue [Unknown]
  - Product quality issue [Unknown]
  - Product physical consistency issue [Unknown]
  - Expired product administered [Unknown]
  - Product use issue [Unknown]
  - No adverse event [Unknown]

NARRATIVE: CASE EVENT DATE: 201812
